FAERS Safety Report 10207871 (Version 1)
Quarter: 2014Q2

REPORT INFORMATION
  Report Type: Spontaneous
  Country: US (occurrence: US)
  Receive Date: 20140530
  Receipt Date: 20140530
  Transmission Date: 20141212
  Serious: No
  Sender: FDA-Public Use
  Company Number: US-GLAXOSMITHKLINE-A1063558A

PATIENT
  Sex: Female

DRUGS (4)
  1. VENTOLIN [Suspect]
     Indication: PNEUMONIA
     Dosage: 2PUFF FOUR TIMES PER DAY
     Route: 055
     Dates: start: 20140220
  2. METOPROLOL [Concomitant]
  3. PREDNISONE [Concomitant]
  4. TESSALON [Concomitant]

REACTIONS (6)
  - Dyspnoea [Not Recovered/Not Resolved]
  - Sputum increased [Not Recovered/Not Resolved]
  - Cough [Not Recovered/Not Resolved]
  - Hypersensitivity [Not Recovered/Not Resolved]
  - Drug ineffective [Unknown]
  - Off label use [Unknown]
